FAERS Safety Report 12501769 (Version 1)
Quarter: 2016Q2

REPORT INFORMATION
  Report Type: Spontaneous
  Country: FR (occurrence: FR)
  Receive Date: 20160627
  Receipt Date: 20160627
  Transmission Date: 20160815
  Serious: Yes (Death, Life-Threatening, Hospitalization)
  Sender: FDA-Public Use
  Company Number: FR-SA-2016SA116681

PATIENT
  Age: 62 Year
  Sex: Male

DRUGS (7)
  1. QUETIAPINE FUMARATE. [Suspect]
     Active Substance: QUETIAPINE FUMARATE
     Dosage: QUETIAPINE LP 300MG: 60 TABLETS (=18G)
     Route: 048
     Dates: start: 20160519, end: 20160520
  2. THERALENE [Suspect]
     Active Substance: TRIMEPRAZINE
     Dosage: THERALENE 5 MG, FILM COATED DIVISIBLE TABLET 100 DF,1 IN 1 SINGLE INTAKE
     Route: 048
     Dates: start: 20160519, end: 20160520
  3. ZOLPIDEM [Suspect]
     Active Substance: ZOLPIDEM\ZOLPIDEM TARTRATE
     Dosage: ZOLPIDEM 10MG: 14 TABLETS (=140MG)
     Route: 048
     Dates: start: 20160519, end: 20160520
  4. DOSULEPIN HYDROCHLORIDE [Suspect]
     Active Substance: DOTHIEPIN HYDROCHLORIDE
     Route: 048
     Dates: start: 20160519, end: 20160520
  5. LAMOTRIGINE. [Suspect]
     Active Substance: LAMOTRIGINE
     Route: 048
     Dates: start: 20160519, end: 20160520
  6. LEXOMIL [Suspect]
     Active Substance: BROMAZEPAM
     Dosage: LEXOMIL 6MG: 120 TABLETS (=720MG)
     Route: 048
     Dates: start: 20160519, end: 20160520
  7. TERALITHE [Suspect]
     Active Substance: LITHIUM CARBONATE
     Dosage: TERALITHE LP 4 00 MG, PROLONGED RELEASE DIVISIBLE TABLET 120 DF,1 IN 1 SINGLE INTAKE
     Route: 048
     Dates: start: 20160519, end: 20160520

REACTIONS (18)
  - Pupils unequal [Not Recovered/Not Resolved]
  - Encephalopathy [Fatal]
  - Bundle branch block left [Unknown]
  - Mydriasis [Recovered/Resolved]
  - Cyanosis [Not Recovered/Not Resolved]
  - Hypothermia [Not Recovered/Not Resolved]
  - Cardiac arrest [Recovered/Resolved]
  - Atrioventricular block first degree [Unknown]
  - Multiple organ dysfunction syndrome [Fatal]
  - Disturbance in attention [Not Recovered/Not Resolved]
  - Bradycardia [Not Recovered/Not Resolved]
  - Acute hepatic failure [Not Recovered/Not Resolved]
  - Acute respiratory distress syndrome [Fatal]
  - Myoclonus [Not Recovered/Not Resolved]
  - Acute kidney injury [Not Recovered/Not Resolved]
  - Hypotension [Not Recovered/Not Resolved]
  - Bradypnoea [Not Recovered/Not Resolved]
  - Acidosis [Unknown]

NARRATIVE: CASE EVENT DATE: 20160520
